FAERS Safety Report 23652445 (Version 4)
Quarter: 2024Q2

REPORT INFORMATION
  Report Type: Report from Study
  Country: ZA (occurrence: ZA)
  Receive Date: 20240320
  Receipt Date: 20240510
  Transmission Date: 20240716
  Serious: Yes (Other)
  Sender: FDA-Public Use
  Company Number: ZA-002147023-NVSC2024ZA020460

PATIENT
  Sex: Male

DRUGS (2)
  1. OFATUMUMAB [Suspect]
     Active Substance: OFATUMUMAB
     Indication: Relapsing-remitting multiple sclerosis
     Dosage: 20 MG, QMO (PATIENT HAD JUST INITIATED BONSPRI LOADING DOSE)
     Route: 058
     Dates: start: 20240103
  2. OFATUMUMAB [Suspect]
     Active Substance: OFATUMUMAB
     Indication: Multiple sclerosis
     Dosage: 20 MG, QMO
     Route: 058
     Dates: start: 20240127

REACTIONS (9)
  - Burning sensation [Recovered/Resolved]
  - Mental impairment [Unknown]
  - Peripheral swelling [Unknown]
  - Peripheral coldness [Unknown]
  - Pain [Unknown]
  - Amnesia [Unknown]
  - Incoherent [Unknown]
  - Mental disorder [Unknown]
  - Drug ineffective [Unknown]
